FAERS Safety Report 6807657-6 (Version None)
Quarter: 2010Q2

REPORT INFORMATION
  Report Type: 
  Country: None (occurrence: None)
  Receive Date: 20100629
  Receipt Date: 20081105
  Transmission Date: 20101027
  Serious: Yes (Other)
  Sender: FDA-Public Use
  Company Number: US-PFIZER INC-2008093696

PATIENT
  Sex: Female

DRUGS (3)
  1. XANAX [Suspect]
  2. VALIUM [Suspect]
  3. KLONOPIN [Suspect]

REACTIONS (3)
  - DRUG DEPENDENCE [None]
  - MUSCLE TIGHTNESS [None]
  - MYALGIA [None]
